FAERS Safety Report 8317162-6 (Version None)
Quarter: 2012Q2

REPORT INFORMATION
  Report Type: 
  Country: None (occurrence: None)
  Receive Date: 20120425
  Receipt Date: 20120416
  Transmission Date: 20120825
  Serious: Yes (Other)
  Sender: FDA-Public Use
  Company Number: AUR-APL-2012-01160

PATIENT
  Age: 75 Year
  Sex: Male

DRUGS (13)
  1. FORMOTEROL FUMARATE [Suspect]
     Indication: PRODUCT USED FOR UNKNOWN INDICATION
     Dosage: RESPIRATORY (INHALATION)
     Route: 055
  2. ATORVASTATIN CALCIUM [Suspect]
     Indication: PRODUCT USED FOR UNKNOWN INDICATION
  3. RAMIPRIL [Suspect]
     Indication: PRODUCT USED FOR UNKNOWN INDICATION
     Dosage: 5 MG, 1 D
  4. FUROSEMIDE [Suspect]
     Indication: PRODUCT USED FOR UNKNOWN INDICATION
  5. SYMBICORT [Concomitant]
  6. WARFARIN SODIUM [Suspect]
     Indication: ATRIAL FIBRILLATION
  7. VERAPAMIL [Suspect]
     Indication: ATRIAL FIBRILLATION
  8. ALBUTEROL SULFATE [Suspect]
     Indication: PRODUCT USED FOR UNKNOWN INDICATION
  9. SPIRIVA [Concomitant]
  10. METFORMIN HCL [Suspect]
     Indication: PRODUCT USED FOR UNKNOWN INDICATION
  11. PREDNISOLONE [Suspect]
     Indication: CHRONIC OBSTRUCTIVE PULMONARY DISEASE
  12. FORMOTEROL FUMARATE [Suspect]
     Indication: PRODUCT USED FOR UNKNOWN INDICATION
  13. CYSTEINE HYDROCHLORIDE [Suspect]
     Indication: PRODUCT USED FOR UNKNOWN INDICATION

REACTIONS (1)
  - HALLUCINATION [None]
